FAERS Safety Report 9322999 (Version 1)
Quarter: 2013Q2

REPORT INFORMATION
  Report Type: Spontaneous
  Country: GB (occurrence: GB)
  Receive Date: 20130603
  Receipt Date: 20130603
  Transmission Date: 20140414
  Serious: Yes (Life-Threatening, Hospitalization)
  Sender: FDA-Public Use
  Company Number: GB-AMGEN-GBRSP2013038730

PATIENT
  Age: 78 Year
  Sex: Female

DRUGS (3)
  1. DENOSUMAB [Suspect]
     Indication: OSTEOPOROSIS
     Dosage: 60 MG, UNK
     Route: 058
     Dates: start: 20130311, end: 20130311
  2. CALCICHEW D3 [Concomitant]
  3. EYE DROPS                          /00256502/ [Concomitant]

REACTIONS (5)
  - Eye irritation [Recovering/Resolving]
  - Burning sensation [Recovering/Resolving]
  - Flushing [Recovering/Resolving]
  - Throat irritation [Recovering/Resolving]
  - Erythema [Recovering/Resolving]
